FAERS Safety Report 22212890 (Version 2)
Quarter: 2023Q2

REPORT INFORMATION
  Report Type: Report from Study
  Country: ES (occurrence: ES)
  Receive Date: 20230414
  Receipt Date: 20230522
  Transmission Date: 20230721
  Serious: Yes (Other)
  Sender: FDA-Public Use
  Company Number: ES-GLAXOSMITHKLINE-ES2023GSK051988

PATIENT

DRUGS (4)
  1. BELANTAMAB MAFODOTIN [Suspect]
     Active Substance: BELANTAMAB MAFODOTIN
     Indication: Plasma cell myeloma
     Dosage: 1.9 MG, CYC (CYCLE 8, DAY 1)
     Route: 042
     Dates: start: 20220307
  2. BORTEZOMIB [Suspect]
     Active Substance: BORTEZOMIB
     Indication: Plasma cell myeloma
     Dosage: 1.9 MG, CYC (CYCLE 8, DAY 11)
     Route: 058
     Dates: start: 20220307
  3. DEXAMETHASONE [Suspect]
     Active Substance: DEXAMETHASONE
     Indication: Plasma cell myeloma
     Dosage: 20 MG, CYC (CYCLE 8, DAY 12)
     Route: 048
     Dates: start: 20230307
  4. LENALIDOMIDE [Suspect]
     Active Substance: LENALIDOMIDE
     Indication: Plasma cell myeloma
     Dosage: 10 MG, CYC (CYCLE 11, DAY 18)
     Route: 048
     Dates: start: 20230307

REACTIONS (1)
  - Vertebroplasty [Recovered/Resolved]

NARRATIVE: CASE EVENT DATE: 20230409
